FAERS Safety Report 5822499-6 (Version None)
Quarter: 2008Q3

REPORT INFORMATION
  Report Type: 
  Country: None (occurrence: None)
  Receive Date: 20080725
  Receipt Date: 20080717
  Transmission Date: 20090109
  Serious: Yes (Hospitalization)
  Sender: FDA-Public Use
  Company Number: US-GILEAD-2008-0017312

PATIENT
  Sex: Male
  Weight: 77.18 kg

DRUGS (11)
  1. AMBRISENTAN [Suspect]
     Indication: PULMONARY ARTERIAL HYPERTENSION
     Route: 048
     Dates: start: 20080111
  2. AMBRISENTAN [Suspect]
     Dates: start: 20070725, end: 20080110
  3. OXYGEN [Concomitant]
  4. SILDENAFIL CITRATE [Concomitant]
  5. ILOPROST [Concomitant]
     Route: 055
     Dates: start: 20080501
  6. LASIX [Concomitant]
  7. HYDRALAZINE HCL [Concomitant]
  8. ALBUTEROL [Concomitant]
     Dates: start: 20080501
  9. METOLAZONE [Concomitant]
  10. DIGOXIN [Concomitant]
  11. CARBIDOPA [Concomitant]

REACTIONS (1)
  - PLEURAL EFFUSION [None]
